FAERS Safety Report 5470159-6 (Version None)
Quarter: 2007Q3

REPORT INFORMATION
  Report Type: 
  Country: None (occurrence: None)
  Receive Date: 20070924
  Receipt Date: 20070911
  Transmission Date: 20080115
  Serious: Yes (Hospitalization)
  Sender: FDA-Public Use
  Company Number: GXKR2007US07903

PATIENT
  Age: 38 Year
  Sex: Female

DRUGS (9)
  1. NAPROXEN [Suspect]
     Indication: ARTHRALGIA
     Dosage: 325 MG DAILY,
  2. PARACETAMOL [Suspect]
     Indication: ARTHRALGIA
     Dosage: 500 MG, BID,
  3. DIPHENHYDRAMINE HCL [Concomitant]
  4. PMS-CONJUGATED ESTROGENS [Concomitant]
  5. METOCLOPRAMIDE                 (METOCLOPRAMIDE) [Concomitant]
  6. FENOFIBRATE [Concomitant]
  7. VENLAFAXINE HCL [Concomitant]
  8. PANTOPRAZOLE SODIUM [Concomitant]
  9. HYDROCHLORIC ACID (HYDROCHLORIC ACID) [Concomitant]

REACTIONS (7)
  - HYDRONEPHROSIS [None]
  - NEPHROPATHY TOXIC [None]
  - OBSTRUCTIVE UROPATHY [None]
  - RENAL ATROPHY [None]
  - RENAL IMPAIRMENT [None]
  - RENAL PAPILLARY NECROSIS [None]
  - URETERAL STENT INSERTION [None]
